FAERS Safety Report 22142213 (Version 1)
Quarter: 2023Q1

REPORT INFORMATION
  Report Type: Report from Study
  Country: GB (occurrence: GB)
  Receive Date: 20230327
  Receipt Date: 20230327
  Transmission Date: 20230417
  Serious: Yes (Hospitalization)
  Sender: FDA-Public Use
  Company Number: GB-PFIZER INC-PV202300054045

PATIENT
  Age: 68 Year
  Sex: Female
  Weight: 52 kg

DRUGS (3)
  1. CARBOPLATIN [Suspect]
     Active Substance: CARBOPLATIN
     Indication: Anal cancer
     Dosage: AUC 5 DAY 1 OF EACH 28-DAY CYCLE
     Route: 042
     Dates: start: 20220915
  2. PACLITAXEL [Suspect]
     Active Substance: PACLITAXEL
     Indication: Anal cancer
     Dosage: 108 MG, DAY 1, 8 AND 15 OF EACH 28-DAY CYCLE
     Route: 042
     Dates: start: 20220915, end: 20230216
  3. INVESTIGATIONAL PRODUCT [Suspect]
     Active Substance: INVESTIGATIONAL PRODUCT
     Indication: Anal cancer
     Dosage: ON DAY 1 OF EACH 28-DAY-CYCLE
     Route: 042
     Dates: start: 20220915, end: 20230216

REACTIONS (2)
  - Syncope [Recovering/Resolving]
  - Spinal compression fracture [Recovering/Resolving]

NARRATIVE: CASE EVENT DATE: 20230215
